FAERS Safety Report 9889156 (Version 2)
Quarter: 2014Q1

REPORT INFORMATION
  Report Type: Report from Study
  Country: US (occurrence: US)
  Receive Date: 20140211
  Receipt Date: 20140212
  Transmission Date: 20141002
  Serious: Yes (Hospitalization)
  Sender: FDA-Public Use
  Company Number: US-SA-2014SA013009

PATIENT
  Age: 52 Year
  Sex: Female

DRUGS (15)
  1. OXALIPLATIN [Suspect]
     Indication: COLON CANCER
     Route: 042
     Dates: start: 20130710, end: 20130721
  2. OXALIPLATIN [Suspect]
     Indication: COLON CANCER
     Route: 042
     Dates: start: 20130903
  3. BEVACIZUMAB [Suspect]
     Indication: COLON CANCER
     Route: 042
     Dates: start: 20130710, end: 20130821
  4. BEVACIZUMAB [Suspect]
     Indication: COLON CANCER
     Route: 042
     Dates: start: 20130903
  5. LEUCOVORIN [Suspect]
     Indication: COLON CANCER
     Route: 042
     Dates: start: 20130710, end: 20130821
  6. LEUCOVORIN [Suspect]
     Indication: COLON CANCER
     Route: 042
     Dates: start: 20130903
  7. IRINOTECAN [Suspect]
     Indication: COLON CANCER
     Route: 042
     Dates: start: 20130807, end: 20130821
  8. IRINOTECAN [Suspect]
     Indication: COLON CANCER
     Route: 042
     Dates: start: 20130903
  9. 5-FU [Suspect]
     Indication: COLON CANCER
     Route: 040
  10. 5-FU [Suspect]
     Indication: COLON CANCER
     Route: 042
     Dates: start: 20130903
  11. 5-FU [Suspect]
     Indication: COLON CANCER
     Route: 042
     Dates: start: 20130710, end: 20130821
  12. LISINOPRIL [Concomitant]
     Route: 048
     Dates: start: 201304
  13. METFORMIN HYDROCHLORIDE [Concomitant]
     Route: 048
  14. PHENERGAN [Concomitant]
     Dates: start: 20130618
  15. ONDANSETRON HYDROCHLORIDE [Concomitant]

REACTIONS (1)
  - Duodenal ulcer [Not Recovered/Not Resolved]
